FAERS Safety Report 12248718 (Version 1)
Quarter: 2016Q2

REPORT INFORMATION
  Report Type: Spontaneous
  Country: US (occurrence: US)
  Receive Date: 20160408
  Receipt Date: 20160408
  Transmission Date: 20160815
  Serious: No
  Sender: FDA-Public Use
  Company Number: US-BAYER-2016-067476

PATIENT
  Age: 87 Year
  Sex: Male
  Weight: 61.22 kg

DRUGS (3)
  1. LOSARTAN. [Concomitant]
     Active Substance: LOSARTAN
     Dosage: UNK
  2. CLARITIN [Suspect]
     Active Substance: LORATADINE
     Indication: SEASONAL ALLERGY
     Dosage: 1 DF, QD
     Route: 048
     Dates: end: 20160405
  3. FISH OIL [Concomitant]
     Active Substance: FISH OIL
     Dosage: UNK

REACTIONS (5)
  - Feeling jittery [None]
  - Drug ineffective [None]
  - Initial insomnia [Recovered/Resolved]
  - Sleep disorder [Recovered/Resolved]
  - Insomnia [None]

NARRATIVE: CASE EVENT DATE: 20160403
